FAERS Safety Report 5992541-0 (Version None)
Quarter: 2008Q4

REPORT INFORMATION
  Report Type: 
  Country: None (occurrence: None)
  Receive Date: 20081211
  Receipt Date: 20080521
  Transmission Date: 20090506
  Serious: No
  Sender: FDA-Public Use
  Company Number: US-AMGEN-KDL279760

PATIENT
  Sex: Female
  Weight: 88.5 kg

DRUGS (2)
  1. ENBREL [Suspect]
     Indication: PSORIASIS
     Route: 058
     Dates: start: 20071201
  2. PRINIVIL [Concomitant]

REACTIONS (1)
  - BLOOD GLUCOSE INCREASED [None]
